FAERS Safety Report 7142452-2 (Version None)
Quarter: 2010Q4

REPORT INFORMATION
  Report Type: 
  Country: None (occurrence: None)
  Receive Date: 20101207
  Receipt Date: 20101129
  Transmission Date: 20110411
  Serious: Yes (Other)
  Sender: FDA-Public Use
  Company Number: US-PFIZER INC-2010159483

PATIENT
  Sex: Female
  Weight: 111 kg

DRUGS (1)
  1. PRISTIQ [Suspect]
     Indication: MOOD SWINGS
     Dosage: 50 MG, 1X/DAY
     Route: 048
     Dates: start: 20100101

REACTIONS (1)
  - BLOOD CHOLESTEROL INCREASED [None]
